FAERS Safety Report 18427309 (Version 1)
Quarter: 2020Q4

REPORT INFORMATION
  Report Type: Spontaneous
  Country: FR (occurrence: FR)
  Receive Date: 20201026
  Receipt Date: 20201026
  Transmission Date: 20210114
  Serious: Yes (Hospitalization)
  Sender: FDA-Public Use
  Company Number: NVSC2020FR283555

PATIENT
  Age: 87 Year
  Sex: Male
  Weight: 82.6 kg

DRUGS (3)
  1. GENTAMICIN. [Suspect]
     Active Substance: GENTAMICIN
     Indication: MENINGITIS LISTERIA
     Dosage: 320 MG, QD
     Route: 042
     Dates: start: 20200117, end: 20200119
  2. LASILIX [Concomitant]
     Active Substance: FUROSEMIDE
     Indication: CARDIAC FAILURE
     Dosage: 80 MG, QD
     Route: 048
  3. AMOXICILLIN. [Suspect]
     Active Substance: AMOXICILLIN
     Indication: MENINGITIS LISTERIA
     Dosage: 9 G, QD (1.5G X 6/J PUIS 2G X3/J)
     Route: 042
     Dates: start: 20200117, end: 20200207

REACTIONS (2)
  - Acute kidney injury [Not Recovered/Not Resolved]
  - Haematuria [Unknown]

NARRATIVE: CASE EVENT DATE: 20200120
